FAERS Safety Report 24064792 (Version 1)
Quarter: 2024Q3

REPORT INFORMATION
  Report Type: Spontaneous
  Country: US (occurrence: US)
  Receive Date: 20240709
  Receipt Date: 20240709
  Transmission Date: 20241017
  Serious: Yes (Other)
  Sender: CSL BEHRING
  Company Number: US-BEH-2024167945

PATIENT
  Age: 16 Year
  Sex: Male

DRUGS (5)
  1. HUMATE-P [Suspect]
     Active Substance: HUMAN COAGULATION FACTOR VIII/VON WILLEBRAND FACTOR COMPLEX
     Indication: Von Willebrand^s disease
     Dosage: 3100 INTERNATIONAL UNIT, PRN
     Route: 042
     Dates: start: 202309
  2. HUMATE-P [Suspect]
     Active Substance: HUMAN COAGULATION FACTOR VIII/VON WILLEBRAND FACTOR COMPLEX
     Indication: Internal haemorrhage
     Dosage: UNK UNK, PRN
     Route: 042
     Dates: start: 20240610
  3. HUMATE-P [Suspect]
     Active Substance: HUMAN COAGULATION FACTOR VIII/VON WILLEBRAND FACTOR COMPLEX
     Indication: Haemarthrosis
     Dosage: 3100 INTERNATIONAL UNIT, EVERY TUESDAY AND FRIDAY
     Route: 042
     Dates: start: 202309
  4. HUMATE-P [Suspect]
     Active Substance: HUMAN COAGULATION FACTOR VIII/VON WILLEBRAND FACTOR COMPLEX
     Indication: Prophylaxis
     Dosage: 1 DF, PRN
     Route: 042
     Dates: start: 202401
  5. HUMATE-P [Suspect]
     Active Substance: HUMAN COAGULATION FACTOR VIII/VON WILLEBRAND FACTOR COMPLEX
     Dosage: 4 DF, PRN
     Route: 042
     Dates: start: 202401

REACTIONS (5)
  - Haemarthrosis [Recovered/Resolved]
  - Sports injury [Recovered/Resolved]
  - Haemorrhage [Unknown]
  - Internal haemorrhage [Recovered/Resolved]
  - Internal haemorrhage [Recovered/Resolved]

NARRATIVE: CASE EVENT DATE: 20240101
